FAERS Safety Report 7069127-2 (Version None)
Quarter: 2010Q4

REPORT INFORMATION
  Report Type: 
  Country: None (occurrence: None)
  Receive Date: 20101028
  Receipt Date: 20101022
  Transmission Date: 20110411
  Serious: Yes (Hospitalization, Other)
  Sender: FDA-Public Use
  Company Number: A0886011A

PATIENT
  Age: 19 Year
  Sex: Male
  Weight: 114 kg

DRUGS (1)
  1. ACYCLOVIR SODIUM [Suspect]
     Indication: NEUTROPENIA
     Dosage: 610MG THREE TIMES PER DAY
     Route: 042
     Dates: start: 20100720

REACTIONS (8)
  - ANAEMIA [None]
  - APLASTIC ANAEMIA [None]
  - ASPERGILLOSIS [None]
  - FEBRILE NEUTROPENIA [None]
  - LUNG INFILTRATION [None]
  - LYMPHADENOPATHY [None]
  - PANCYTOPENIA [None]
  - THROMBOCYTOPENIA [None]
